FAERS Safety Report 10585362 (Version 1)
Quarter: 2014Q4

REPORT INFORMATION
  Report Type: Spontaneous
  Country: ES (occurrence: None)
  Receive Date: 20141113
  Receipt Date: 20141113
  Transmission Date: 20150529
  Serious: Yes (Life-Threatening, Hospitalization)
  Sender: FDA-Public Use
  Company Number: ES-ZYDUS-005441

PATIENT
  Sex: Female

DRUGS (1)
  1. HYDROXYCHLOROQUINE [Suspect]
     Active Substance: HYDROXYCHLOROQUINE
     Indication: SYSTEMIC LUPUS ERYTHEMATOSUS

REACTIONS (9)
  - Pulmonary alveolar haemorrhage [None]
  - Weight decreased [None]
  - Arthralgia [None]
  - Anaemia [None]
  - Treatment noncompliance [None]
  - Lupus pancreatitis [None]
  - Systemic lupus erythematosus [None]
  - Vasculitis [None]
  - Acute respiratory failure [None]
